FAERS Safety Report 9247719 (Version 1)
Quarter: 2013Q2

REPORT INFORMATION
  Report Type: Spontaneous
  Country: US (occurrence: US)
  Receive Date: 20130423
  Receipt Date: 20130423
  Transmission Date: 20140414
  Serious: Yes (Other)
  Sender: FDA-Public Use
  Company Number: US-PFIZER INC-2013122756

PATIENT
  Age: 34 Year
  Sex: Male
  Weight: 86.17 kg

DRUGS (2)
  1. ZOLOFT [Suspect]
     Indication: DEPRESSION
     Dosage: 50 MG, 1X/DAY
     Route: 048
  2. ZOLOFT [Suspect]
     Dosage: 100 MG, 1X/DAY
     Route: 048
     Dates: end: 2013

REACTIONS (9)
  - Multiple sclerosis [Unknown]
  - Gait disturbance [Unknown]
  - Dizziness [Unknown]
  - Memory impairment [Unknown]
  - Nervous system disorder [Unknown]
  - Hearing impaired [Unknown]
  - Impaired driving ability [Unknown]
  - Feeling abnormal [Unknown]
  - Drug ineffective [Unknown]
